FAERS Safety Report 16044666 (Version 1)
Quarter: 2019Q1

REPORT INFORMATION
  Report Type: Spontaneous
  Country: FR (occurrence: FR)
  Receive Date: 20190306
  Receipt Date: 20190306
  Transmission Date: 20190418
  Serious: Yes (Other)
  Sender: FDA-Public Use
  Company Number: FR-PROVELL PHARMACEUTICALS-2063645

PATIENT
  Age: 68 Year
  Sex: Female
  Weight: 65 kg

DRUGS (2)
  1. EUTHYROX [Suspect]
     Active Substance: LEVOTHYROXINE SODIUM
     Indication: HYPOTHYROIDISM
     Route: 048
     Dates: start: 2010, end: 2017
  2. COVERSYL [Concomitant]
     Active Substance: PERINDOPRIL
     Route: 048
     Dates: start: 20131128

REACTIONS (5)
  - Gastrooesophageal reflux disease [Recovered/Resolved]
  - Alopecia [Recovered/Resolved]
  - Myalgia [Recovered/Resolved]
  - Asthenia [Recovered/Resolved]
  - Headache [Recovered/Resolved]

NARRATIVE: CASE EVENT DATE: 201705
